FAERS Safety Report 5189727-4 (Version None)
Quarter: 2006Q4

REPORT INFORMATION
  Report Type: 
  Country: None (occurrence: None)
  Receive Date: 20061221
  Receipt Date: 20050630
  Transmission Date: 20070319
  Serious: No
  Sender: FDA-Public Use
  Company Number: US-AMGEN-US140885

PATIENT
  Sex: Female

DRUGS (3)
  1. ENBREL [Suspect]
     Indication: PSORIATIC ARTHROPATHY
     Route: 058
     Dates: start: 20050301
  2. ULTRAVATE [Concomitant]
     Route: 065
     Dates: start: 20050628
  3. DOVONEX [Concomitant]
     Route: 065
     Dates: start: 20050628

REACTIONS (2)
  - CONTUSION [None]
  - INJECTION SITE HAEMORRHAGE [None]
